FAERS Safety Report 6983754-X (Version None)
Quarter: 2010Q3

REPORT INFORMATION
  Report Type: 
  Country: None (occurrence: None)
  Receive Date: 20100914
  Receipt Date: 20051125
  Transmission Date: 20110219
  Serious: Yes (Hospitalization)
  Sender: FDA-Public Use
  Company Number: US-WYE-H07146008

PATIENT
  Age: 84 Year

DRUGS (8)
  1. IBUPROFEN [Suspect]
     Indication: PAIN
     Route: 048
     Dates: start: 20000627
  2. DIGOXIN [Concomitant]
     Dosage: UNKNOWN
     Route: 048
  3. CANDESARTAN CILEXETIL [Concomitant]
     Dosage: UNKNOWN
     Route: 048
  4. GLYBURIDE [Concomitant]
     Dosage: UNKNOWN
     Route: 048
  5. METFORMIN HCL [Concomitant]
     Dosage: UNKNOWN
     Route: 048
  6. SIMVASTATIN [Concomitant]
     Dosage: UNKNOWN
     Route: 048
  7. ASPIRIN [Concomitant]
     Dosage: UNKNOWN
     Route: 048
  8. FUROSEMIDE [Concomitant]
     Dosage: UNKNOWN
     Route: 048

REACTIONS (2)
  - GASTRITIS [None]
  - OVERDOSE [None]
